FAERS Safety Report 11822550 (Version 1)
Quarter: 2015Q4

REPORT INFORMATION
  Report Type: Spontaneous
  Country: FR (occurrence: FR)
  Receive Date: 20151210
  Receipt Date: 20151210
  Transmission Date: 20160305
  Serious: Yes (Disabling, Other)
  Sender: FDA-Public Use
  Company Number: FR-GLAXOSMITHKLINE-FR2015GSK172087

PATIENT
  Age: 53 Year
  Sex: Male

DRUGS (2)
  1. ADARTREL [Suspect]
     Active Substance: ROPINIROLE
     Indication: RESTLESS LEGS SYNDROME
     Dosage: 4 MG, QD
     Route: 048
     Dates: start: 2007, end: 20120331
  2. ROPINIROLE. [Suspect]
     Active Substance: ROPINIROLE
     Indication: RESTLESS LEGS SYNDROME
     Dosage: 2 MG, UNK
     Route: 048
     Dates: start: 20120401, end: 20151022

REACTIONS (10)
  - Hypersexuality [Recovered/Resolved with Sequelae]
  - Compulsive shopping [Recovered/Resolved with Sequelae]
  - Impulse-control disorder [Recovered/Resolved with Sequelae]
  - Irritability [Recovered/Resolved with Sequelae]
  - Sudden onset of sleep [Recovered/Resolved with Sequelae]
  - Alcoholism [Recovered/Resolved with Sequelae]
  - Diarrhoea [Recovered/Resolved with Sequelae]
  - Nausea [Recovered/Resolved with Sequelae]
  - Aerophagia [Recovered/Resolved with Sequelae]
  - Kleptomania [Recovered/Resolved with Sequelae]

NARRATIVE: CASE EVENT DATE: 20110101
